FAERS Safety Report 11826899 (Version 1)
Quarter: 2015Q4

REPORT INFORMATION
  Report Type: Spontaneous
  Country: US (occurrence: US)
  Receive Date: 20151211
  Receipt Date: 20151211
  Transmission Date: 20160305
  Serious: No
  Sender: FDA-Public Use
  Company Number: US-AKRON, INC.-1045372

PATIENT
  Sex: Female

DRUGS (3)
  1. FUNGAL EYE DROP [Concomitant]
  2. LUMIGAN [Concomitant]
     Active Substance: BIMATOPROST
  3. DORZOLAMIDE HCL [Suspect]
     Active Substance: DORZOLAMIDE HYDROCHLORIDE

REACTIONS (4)
  - Eye pain [Unknown]
  - Vision blurred [Unknown]
  - Headache [Unknown]
  - Dizziness [Unknown]
